FAERS Safety Report 21065472 (Version 1)
Quarter: 2022Q3

REPORT INFORMATION
  Report Type: Spontaneous
  Country: None (occurrence: US)
  Receive Date: 20220711
  Receipt Date: 20220711
  Transmission Date: 20221027
  Serious: No
  Sender: FDA-Public Use
  Company Number: US-Mission Pharmacal Company-2130737

PATIENT
  Age: 61 Year
  Sex: Male

DRUGS (1)
  1. THIOLA EC [Suspect]
     Active Substance: TIOPRONIN
     Indication: Cystinuria
     Route: 048
     Dates: start: 20220619

REACTIONS (5)
  - Faeces soft [Unknown]
  - Muscle spasms [Unknown]
  - Back pain [Unknown]
  - Weight increased [Unknown]
  - Hyperkalaemia [Unknown]
